FAERS Safety Report 12447781 (Version 1)
Quarter: 2016Q2

REPORT INFORMATION
  Report Type: Spontaneous
  Country: US (occurrence: US)
  Receive Date: 20160608
  Receipt Date: 20160608
  Transmission Date: 20160815
  Serious: No
  Sender: FDA-Public Use
  Company Number: US-SA-2016SA095034

PATIENT
  Age: 70 Year
  Sex: Female

DRUGS (4)
  1. TOUJEO [Suspect]
     Active Substance: INSULIN GLARGINE
     Indication: TYPE 2 DIABETES MELLITUS
     Dosage: DOSE:44 UNIT(S)
     Route: 065
     Dates: start: 2015
  2. INSULIN [Concomitant]
     Active Substance: INSULIN NOS
     Dosage: WITH MEALS
  3. SOLOSTAR [Concomitant]
     Active Substance: DEVICE
     Dates: start: 2015
  4. GLIPIZIDE. [Suspect]
     Active Substance: GLIPIZIDE
     Route: 065
     Dates: end: 2016

REACTIONS (2)
  - Product use issue [Unknown]
  - Blood glucose decreased [Recovered/Resolved]
